FAERS Safety Report 14168015 (Version 1)
Quarter: 2017Q4

REPORT INFORMATION
  Report Type: Report from Study
  Country: JP (occurrence: JP)
  Receive Date: 20171108
  Receipt Date: 20171108
  Transmission Date: 20180321
  Serious: Yes (Other)
  Sender: FDA-Public Use
  Company Number: JP-SUN PHARMACEUTICAL INDUSTRIES LTD-2017RR-153898

PATIENT
  Age: 51 Year
  Sex: Male

DRUGS (6)
  1. IMATINIB [Suspect]
     Active Substance: IMATINIB
     Indication: PULMONARY VENO-OCCLUSIVE DISEASE
     Dosage: 200 MG
     Route: 065
  2. IMATINIB [Suspect]
     Active Substance: IMATINIB
     Indication: PULMONARY CAPILLARY HAEMANGIOMATOSIS
     Dosage: 200 MG, DAILY
     Route: 065
  3. IMATINIB [Suspect]
     Active Substance: IMATINIB
     Indication: PULMONARY VENO-OCCLUSIVE DISEASE
     Dosage: 300 MG, DAILY, AT DAY 542
     Route: 065
  4. IMATINIB [Suspect]
     Active Substance: IMATINIB
     Indication: PULMONARY VENO-OCCLUSIVE DISEASE
     Dosage: 250 MG, DAILY
     Route: 065
  5. IMATINIB [Suspect]
     Active Substance: IMATINIB
     Indication: PULMONARY CAPILLARY HAEMANGIOMATOSIS
  6. IMATINIB [Suspect]
     Active Substance: IMATINIB
     Indication: PULMONARY CAPILLARY HAEMANGIOMATOSIS

REACTIONS (2)
  - Off label use [Unknown]
  - Agranulocytosis [Recovered/Resolved]
